FAERS Safety Report 9411947 (Version 1)
Quarter: 2013Q3

REPORT INFORMATION
  Report Type: Spontaneous
  Country: US (occurrence: US)
  Receive Date: 20130722
  Receipt Date: 20130722
  Transmission Date: 20140515
  Serious: Yes (Other)
  Sender: FDA-Public Use
  Company Number: PHEH2013US015464

PATIENT
  Sex: Female

DRUGS (9)
  1. RECLAST [Suspect]
     Dosage: UNK UKN, UNK
     Route: 042
     Dates: start: 2006
  2. LANTUS [Concomitant]
     Dosage: UNK UKN, UNK
  3. NOVOLOG [Concomitant]
     Dosage: UNK UKN, UNK
  4. CARVEDILOL [Concomitant]
     Dosage: UNK UKN, UNK
  5. LOSARTAN POTASSIUM [Concomitant]
     Dosage: 100 MG, QD
  6. LEVOTHYROXINE [Concomitant]
     Dosage: 100 UG, QD
  7. GABAPENTIN [Concomitant]
     Dosage: 100 MG, BID
  8. CALCIUM + VITAMIN D [Concomitant]
     Dosage: 600 MG, QD
  9. ZOLOFT [Concomitant]
     Dosage: 25 MG, BID

REACTIONS (3)
  - Spinal cord compression [Unknown]
  - Diabetes mellitus [Unknown]
  - Hypertension [Unknown]
